FAERS Safety Report 9872977 (Version 2)
Quarter: 2014Q1

REPORT INFORMATION
  Report Type: Other
  Country: US (occurrence: US)
  Receive Date: 20140206
  Receipt Date: 20140206
  Transmission Date: 20141002
  Serious: No
  Sender: FDA-Public Use
  Company Number: US-ACORDA-ACO_21191_2010

PATIENT
  Age: 55 Year
  Sex: Male
  Weight: 83.45 kg

DRUGS (8)
  1. AMPYRA [Suspect]
     Indication: GAIT DISTURBANCE
     Dosage: 10 MG, BID
     Route: 048
     Dates: start: 201011, end: 201011
  2. AMPYRA [Suspect]
     Dosage: 10 MG, QD
     Route: 048
     Dates: end: 20130604
  3. AVODART [Concomitant]
     Indication: PRODUCT USED FOR UNKNOWN INDICATION
     Dosage: 0.5 MG, UNK
     Route: 048
  4. COPAXONE [Concomitant]
     Indication: PRODUCT USED FOR UNKNOWN INDICATION
     Dosage: 20 MG, UNK
     Route: 058
  5. ONE A DAY MENS [Concomitant]
     Indication: PRODUCT USED FOR UNKNOWN INDICATION
     Dosage: UNK
  6. ZINC GLUCONATE [Concomitant]
     Indication: ENERGY INCREASED
     Dosage: 10 MG BID
     Dates: start: 201011
  7. ZINC GLUCONATE [Concomitant]
     Dosage: UNK
  8. PROVIGIL [Concomitant]
     Indication: PRODUCT USED FOR UNKNOWN INDICATION
     Dosage: 200 MG, UNK
     Route: 048

REACTIONS (11)
  - Poor quality sleep [Recovered/Resolved]
  - Feeling abnormal [Unknown]
  - Dysuria [Not Recovered/Not Resolved]
  - Tinnitus [Recovering/Resolving]
  - Muscle contractions involuntary [Recovering/Resolving]
  - Intentional drug misuse [Unknown]
  - Urinary tract infection [None]
  - Constipation [Recovering/Resolving]
  - Headache [Recovering/Resolving]
  - Inappropriate schedule of drug administration [Not Recovered/Not Resolved]
  - Pollakiuria [Unknown]
